FAERS Safety Report 12390194 (Version 1)
Quarter: 2016Q2

REPORT INFORMATION
  Report Type: Spontaneous
  Country: CH (occurrence: CH)
  Receive Date: 20160520
  Receipt Date: 20160520
  Transmission Date: 20160815
  Serious: Yes (Hospitalization)
  Sender: FDA-Public Use
  Company Number: CH-PURDUE PHARMA-DEU-2016-0017997

PATIENT
  Age: 87 Year
  Sex: Female

DRUGS (11)
  1. TEMESTA                            /00273201/ [Interacting]
     Active Substance: LORAZEPAM
     Indication: AGITATION
     Dosage: 1 MG, SINGLE
     Route: 048
     Dates: start: 20160321, end: 20160321
  2. VI-DE 3 [Concomitant]
     Active Substance: CHOLECALCIFEROL
     Dosage: 10 GTT, AM
     Route: 048
  3. TEMESTA                            /00273201/ [Interacting]
     Active Substance: LORAZEPAM
     Dosage: 0.5 MG, SINGLE
     Route: 065
     Dates: start: 20160314, end: 20160314
  4. OXYCONTIN [Interacting]
     Active Substance: OXYCODONE HYDROCHLORIDE
     Dosage: 5 MG, BID
     Route: 048
     Dates: end: 20160321
  5. OXYNORM TROPFEN [Interacting]
     Active Substance: OXYCODONE HYDROCHLORIDE
     Indication: PAIN
     Dosage: 3 MG, BID
     Route: 048
     Dates: start: 20160322, end: 20160322
  6. PANTOZOL [Concomitant]
     Active Substance: PANTOPRAZOLE SODIUM
     Dosage: 40 MG, AM
     Route: 048
  7. BELOC ZOK [Concomitant]
     Active Substance: METOPROLOL SUCCINATE
     Dosage: 25 MG, AM
     Route: 048
  8. SELIPRAN [Concomitant]
     Active Substance: PRAVASTATIN SODIUM
     Dosage: 20 MG, UNK
     Route: 048
  9. TOREM                              /01036501/ [Concomitant]
     Active Substance: TORSEMIDE
     Dosage: 10 MG, AM
     Route: 048
  10. OXYCONTIN [Suspect]
     Active Substance: OXYCODONE HYDROCHLORIDE
     Indication: PAIN
     Dosage: 5 MG, AM
     Route: 048
     Dates: start: 20160322, end: 20160322
  11. DIOVAN [Concomitant]
     Active Substance: VALSARTAN
     Dosage: 160 MG, AM
     Route: 048

REACTIONS (3)
  - Medication error [Recovered/Resolved]
  - Femur fracture [Recovering/Resolving]
  - Fall [Recovering/Resolving]

NARRATIVE: CASE EVENT DATE: 20160321
